FAERS Safety Report 4546054-3 (Version None)
Quarter: 2005Q1

REPORT INFORMATION
  Report Type: 
  Country: None (occurrence: None)
  Receive Date: 20050103
  Receipt Date: 20040624
  Transmission Date: 20050727
  Serious: Yes (Other)
  Sender: FDA-Public Use
  Company Number: 200475

PATIENT
  Age: 59 Year
  Sex: Female
  Weight: 64.4108 kg

DRUGS (3)
  1. AVONEX [Suspect]
     Indication: MULTIPLE SCLEROSIS
     Dosage: 30 UG; QW; IM
     Route: 030
     Dates: start: 20010301, end: 20040401
  2. AVONEX [Suspect]
     Indication: MULTIPLE SCLEROSIS
     Dosage: 30 UG; QW; IM
     Route: 030
     Dates: start: 20040401, end: 20040501
  3. AVONEX [Suspect]
     Indication: MULTIPLE SCLEROSIS
     Dosage: 30 UG; QW; IM
     Route: 030
     Dates: start: 20040518

REACTIONS (10)
  - BLISTER [None]
  - DRUG ERUPTION [None]
  - ECZEMA [None]
  - FUNGAL RASH [None]
  - INJECTION SITE PRURITUS [None]
  - INJECTION SITE RASH [None]
  - PRURITUS GENERALISED [None]
  - PSORIASIS [None]
  - SKIN OEDEMA [None]
  - THERAPY NON-RESPONDER [None]
